FAERS Safety Report 7436952-5 (Version None)
Quarter: 2011Q2

REPORT INFORMATION
  Report Type: 
  Country: None (occurrence: None)
  Receive Date: 20110426
  Receipt Date: 20110422
  Transmission Date: 20111010
  Serious: Yes (Hospitalization)
  Sender: FDA-Public Use
  Company Number: JP-AMGEN-JPNSP2011013800

PATIENT
  Age: 56 Year
  Sex: Female

DRUGS (7)
  1. CALCITAMIN [Concomitant]
     Dosage: UNK
  2. ZALTOPROFEN [Concomitant]
     Dosage: UNK
  3. FOLIC ACID [Concomitant]
     Dosage: UNK
  4. ALFACALCIDOL [Concomitant]
     Dosage: UNK
  5. ENBREL [Suspect]
     Indication: RHEUMATOID ARTHRITIS
     Dosage: 50 MG, WEEKLY
     Route: 058
     Dates: start: 20061110
  6. ALOSITOL [Concomitant]
     Dosage: UNK
  7. RHEUMATREX [Suspect]
     Dosage: UNK
     Route: 048

REACTIONS (1)
  - LARGE INTESTINE CARCINOMA [None]
